FAERS Safety Report 6817658-X (Version None)
Quarter: 2010Q3

REPORT INFORMATION
  Report Type: 
  Country: None (occurrence: None)
  Receive Date: 20100706
  Receipt Date: 20100624
  Transmission Date: 20110219
  Serious: Yes (Other)
  Sender: FDA-Public Use
  Company Number: US-PFIZER INC-2010079288

PATIENT
  Sex: Female
  Weight: 66.6 kg

DRUGS (3)
  1. ZYVOX [Suspect]
     Indication: NECROTISING FASCIITIS
     Dosage: 600 MG, UNK
     Route: 042
     Dates: start: 20100622, end: 20100623
  2. VANCOMYCIN [Concomitant]
     Indication: NECROTISING FASCIITIS
     Dosage: UNK
     Route: 042
  3. ZOSYN [Concomitant]
     Indication: NECROTISING FASCIITIS
     Dosage: UNK
     Route: 042

REACTIONS (1)
  - BLOOD GLUCOSE INCREASED [None]
